FAERS Safety Report 18776857 (Version 4)
Quarter: 2022Q4

REPORT INFORMATION
  Report Type: Report from Study
  Country: CH (occurrence: CH)
  Receive Date: 20210122
  Receipt Date: 20221205
  Transmission Date: 20230113
  Serious: Yes (Hospitalization, Other)
  Sender: FDA-Public Use
  Company Number: CH-PFIZER INC-2021045402

PATIENT
  Age: 24 Year
  Sex: Male
  Weight: 111 kg

DRUGS (17)
  1. CYTARABINE [Suspect]
     Active Substance: CYTARABINE
     Indication: Chemotherapy
     Dosage: 4200 MG
     Route: 042
     Dates: start: 20200709, end: 20200709
  2. CYTARABINE [Suspect]
     Active Substance: CYTARABINE
     Dosage: 8400 MG
     Route: 042
     Dates: start: 20200710, end: 20200710
  3. CYTARABINE [Suspect]
     Active Substance: CYTARABINE
     Dosage: 4200 MG
     Route: 042
     Dates: start: 20200711
  4. CERUBIDINE [Suspect]
     Active Substance: DAUNORUBICIN HYDROCHLORIDE
     Dosage: UNK
     Dates: start: 20201013
  5. VINCRISTINE [Suspect]
     Active Substance: VINCRISTINE
     Dosage: TEVA
     Dates: start: 20201013, end: 20201103
  6. CYCLOPHOSPHAMIDE [Suspect]
     Active Substance: CYCLOPHOSPHAMIDE
     Dosage: UNK
     Dates: start: 20201013, end: 20201027
  7. ERWINASE [Suspect]
     Active Substance: ASPARAGINASE ERWINIA CHRYSANTHEMI
     Dosage: UNK
     Dates: start: 20201020, end: 20201109
  8. DEXAMETHASONE [Concomitant]
     Active Substance: DEXAMETHASONE
     Dosage: UNK
     Dates: start: 20200709, end: 20200711
  9. NEULASTA [Concomitant]
     Active Substance: PEGFILGRASTIM
     Dosage: UNK
     Dates: start: 20200717
  10. PANTOZOL [Concomitant]
     Active Substance: PANTOPRAZOLE SODIUM
     Indication: Prophylaxis
     Dosage: UNK
     Dates: start: 20200603
  11. SULFAMETHOXAZOLE\TRIMETHOPRIM [Concomitant]
     Active Substance: SULFAMETHOXAZOLE\TRIMETHOPRIM
     Indication: Prophylaxis
     Dosage: UNK
     Dates: start: 20200603
  12. DIFLUCAN [Concomitant]
     Active Substance: FLUCONAZOLE
     Indication: Prophylaxis
     Dosage: UNK
     Dates: start: 20200610
  13. AMOXICILLIN [Concomitant]
     Active Substance: AMOXICILLIN
  14. CLARITHROMYCIN [Concomitant]
     Active Substance: CLARITHROMYCIN
  15. VALTREX [Concomitant]
     Active Substance: VALACYCLOVIR HYDROCHLORIDE
     Indication: Prophylaxis
     Dosage: UNK
     Dates: start: 20200602
  16. ATRIANCE [Concomitant]
     Active Substance: NELARABINE
     Dosage: UNK
     Dates: start: 20200820, end: 20200820
  17. PREDNISONE [Concomitant]
     Active Substance: PREDNISONE
     Dosage: UNK
     Dates: start: 20201013, end: 20201026

REACTIONS (2)
  - Febrile neutropenia [Recovered/Resolved]
  - Alanine aminotransferase increased [Recovered/Resolved]

NARRATIVE: CASE EVENT DATE: 20200720
